FAERS Safety Report 24817755 (Version 1)
Quarter: 2025Q1

REPORT INFORMATION
  Report Type: Spontaneous
  Country: FR (occurrence: FR)
  Receive Date: 20250108
  Receipt Date: 20250108
  Transmission Date: 20250408
  Serious: Yes (Death)
  Sender: ROCHE
  Company Number: None

PATIENT
  Age: 76 Year
  Sex: Male
  Weight: 70 kg

DRUGS (1)
  1. ATEZOLIZUMAB [Suspect]
     Active Substance: ATEZOLIZUMAB
     Indication: Hepatocellular carcinoma
     Route: 050
     Dates: start: 20230829, end: 20231031

REACTIONS (1)
  - Cerebral haemorrhage [Fatal]

NARRATIVE: CASE EVENT DATE: 20231107
